FAERS Safety Report 8181401-5 (Version None)
Quarter: 2012Q1

REPORT INFORMATION
  Report Type: 
  Country: None (occurrence: None)
  Receive Date: 20120228
  Receipt Date: 20120223
  Transmission Date: 20120608
  Serious: No
  Sender: FDA-Public Use
  Company Number: US-PFIZER INC-2012017342

PATIENT
  Sex: Male
  Weight: 68.027 kg

DRUGS (5)
  1. CELEBREX [Suspect]
     Indication: ARTHRITIS
     Dosage: 200 MG, 3X/DAY
     Route: 048
     Dates: start: 20120116, end: 20120120
  2. CELEBREX [Suspect]
     Indication: BACK PAIN
  3. ACETYLSALICYLIC ACID [Concomitant]
     Indication: CARDIOVASCULAR EVENT PROPHYLAXIS
     Dosage: 81 MG, DAILY
  4. NAPROXEN SODIUM [Concomitant]
     Dosage: 440 MG, DAILY
     Route: 048
  5. TRAMADOL [Concomitant]
     Indication: BACK PAIN
     Dosage: 50 MG, DAILY
     Dates: start: 20120101

REACTIONS (8)
  - ASTHENIA [None]
  - NAUSEA [None]
  - PYREXIA [None]
  - OEDEMA PERIPHERAL [None]
  - INFLUENZA LIKE ILLNESS [None]
  - ARTHRALGIA [None]
  - CHEST DISCOMFORT [None]
  - DIARRHOEA [None]
